FAERS Safety Report 14667699 (Version 2)
Quarter: 2021Q3

REPORT INFORMATION
  Report Type: Spontaneous
  Country: US (occurrence: US)
  Receive Date: 20180322
  Receipt Date: 20210908
  Transmission Date: 20211014
  Serious: No
  Sender: FDA-Public Use
  Company Number: US-PFIZER INC-2018115901

PATIENT
  Age: 76 Year
  Sex: Male

DRUGS (2)
  1. MEROPENEM. [Suspect]
     Active Substance: MEROPENEM
     Dosage: UNK
     Route: 042
     Dates: start: 20180317
  2. DAPTOMYCIN. [Suspect]
     Active Substance: DAPTOMYCIN
     Dosage: 500 MG, UNK
     Route: 040
     Dates: start: 20180317

REACTIONS (1)
  - Chills [Unknown]

NARRATIVE: CASE EVENT DATE: 20180317
